FAERS Safety Report 9636072 (Version 1)
Quarter: 2013Q4

REPORT INFORMATION
  Report Type: Spontaneous
  Country: US (occurrence: US)
  Receive Date: 20131021
  Receipt Date: 20131021
  Transmission Date: 20140711
  Serious: Yes (Other)
  Sender: FDA-Public Use
  Company Number: US-PFIZER INC-2013298239

PATIENT
  Sex: Female

DRUGS (4)
  1. PREMARIN [Suspect]
     Dosage: UNK
  2. PREMARIN [Suspect]
     Dosage: 0.625 MG, UNK
  3. RELPAX [Suspect]
     Dosage: UNK
  4. RELPAX [Suspect]
     Dosage: 40 MG, UNK

REACTIONS (1)
  - Coeliac disease [Unknown]
